FAERS Safety Report 7536831-9 (Version None)
Quarter: 2011Q2

REPORT INFORMATION
  Report Type: 
  Country: None (occurrence: None)
  Receive Date: 20110603
  Receipt Date: 20110525
  Transmission Date: 20111010
  Serious: Yes (Hospitalization, Disabling)
  Sender: FDA-Public Use
  Company Number: CL-314-2011-1

PATIENT
  Age: 85 Year
  Sex: Female

DRUGS (12)
  1. NYSTATIN [Concomitant]
  2. FLUCONAZOLE [Concomitant]
  3. GAVISCON [Concomitant]
  4. ESOMEPRAZOLE MAGNESIUM [Concomitant]
  5. LISINOPRIL [Concomitant]
  6. CODEINE [Concomitant]
  7. CYCLIZINE [Concomitant]
  8. METOCLOPRAMIDE [Concomitant]
  9. CLARITHROMYCIN [Suspect]
     Indication: LOWER RESPIRATORY TRACT INFECTION
     Dosage: 500 MG ORAL
     Route: 048
     Dates: start: 20110323, end: 20110324
  10. AMITRIPTYLINE HCL [Concomitant]
  11. ACETAMINOPHEN [Concomitant]
  12. METRONIDAZOLE [Suspect]
     Indication: LOWER RESPIRATORY TRACT INFECTION
     Dosage: 400 MG ORAL
     Route: 048
     Dates: start: 20110323, end: 20110324

REACTIONS (3)
  - CONFUSIONAL STATE [None]
  - ENCEPHALITIS [None]
  - DELIRIUM [None]
